FAERS Safety Report 6367932-9 (Version None)
Quarter: 2009Q3

REPORT INFORMATION
  Report Type: 
  Country: None (occurrence: None)
  Receive Date: 20090922
  Receipt Date: 20090316
  Transmission Date: 20100115
  Serious: No
  Sender: FDA-Public Use
  Company Number: A0761065A

PATIENT
  Age: 81 Year
  Sex: Male

DRUGS (5)
  1. SEREVENT [Suspect]
     Indication: CHRONIC OBSTRUCTIVE PULMONARY DISEASE
     Route: 055
     Dates: start: 20081213
  2. MOMETASONE FUROATE [Concomitant]
  3. VITAMINS [Concomitant]
  4. THYROID MEDICATION [Concomitant]
  5. HYTRIN [Concomitant]

REACTIONS (2)
  - COUGH [None]
  - PRODUCT QUALITY ISSUE [None]
